FAERS Safety Report 20268568 (Version 4)
Quarter: 2023Q1

REPORT INFORMATION
  Report Type: Report from Study
  Country: CA (occurrence: CA)
  Receive Date: 20220101
  Receipt Date: 20230314
  Transmission Date: 20230417
  Serious: Yes (Other)
  Sender: FDA-Public Use
  Company Number: CA-002147023-NVSC2020CA127828

PATIENT
  Age: 55 Year
  Sex: Female

DRUGS (24)
  1. AIMOVIG [Suspect]
     Active Substance: ERENUMAB-AOOE
     Indication: Migraine
     Dosage: 140 MILLIGRAM, QMO
     Route: 058
     Dates: start: 20200210
  2. AIMOVIG [Suspect]
     Active Substance: ERENUMAB-AOOE
     Dosage: 140 MILLIGRAM, QMO
     Route: 065
  3. CANDESARTAN CILEXETIL [Suspect]
     Active Substance: CANDESARTAN CILEXETIL
     Indication: Migraine
     Dosage: 8 MILLIGRAM
     Route: 065
     Dates: start: 20200210
  4. CANDESARTAN CILEXETIL [Suspect]
     Active Substance: CANDESARTAN CILEXETIL
     Dosage: 16 MILLIGRAM
     Route: 065
  5. CANDESARTAN CILEXETIL [Suspect]
     Active Substance: CANDESARTAN CILEXETIL
     Dosage: 8 MILLIGRAM, QD
     Route: 065
  6. CANDESARTAN CILEXETIL [Suspect]
     Active Substance: CANDESARTAN CILEXETIL
     Dosage: 16 MILLIGRAM
     Route: 065
  7. CANDESARTAN CILEXETIL [Suspect]
     Active Substance: CANDESARTAN CILEXETIL
     Dosage: 8 MILLIGRAM
     Route: 065
  8. PANTOPRAZOLE SODIUM [Suspect]
     Active Substance: PANTOPRAZOLE SODIUM
     Indication: Migraine
     Dosage: 80 MILLIGRAM, QD
     Route: 040
     Dates: start: 20200210
  9. PANTOPRAZOLE SODIUM [Suspect]
     Active Substance: PANTOPRAZOLE SODIUM
     Dosage: 40 MG, BID
     Route: 065
  10. FLUOXETINE HYDROCHLORIDE [Suspect]
     Active Substance: FLUOXETINE HYDROCHLORIDE
     Indication: Migraine
     Dosage: 20 MG
     Route: 065
     Dates: start: 20200210
  11. TOPIRAMATE [Suspect]
     Active Substance: TOPIRAMATE
     Indication: Migraine
     Dosage: UNK
     Route: 040
     Dates: start: 20200210
  12. TOPIRAMATE [Suspect]
     Active Substance: TOPIRAMATE
     Dosage: UNK
     Route: 065
  13. NAPROXEN [Concomitant]
     Active Substance: NAPROXEN
     Indication: Product used for unknown indication
     Dosage: 500 MG, PRN
     Route: 065
  14. NAPROXEN [Concomitant]
     Active Substance: NAPROXEN
     Dosage: 500 MG
     Route: 065
  15. MODAFINIL [Concomitant]
     Active Substance: MODAFINIL
     Indication: Product used for unknown indication
     Dosage: 100 MG, BID
     Route: 065
  16. MODAFINIL [Concomitant]
     Active Substance: MODAFINIL
     Dosage: 100 MG, BID
     Route: 065
  17. FERROUS FUMARATE [Concomitant]
     Active Substance: FERROUS FUMARATE
     Indication: Product used for unknown indication
     Dosage: 300 MG
     Route: 065
  18. FERROUS FUMARATE [Concomitant]
     Active Substance: FERROUS FUMARATE
     Dosage: 300 MG
     Route: 065
  19. OSTO-D2 [Concomitant]
     Indication: Product used for unknown indication
     Dosage: 50000 IU, QW
     Route: 065
  20. OSTO-D2 [Concomitant]
     Dosage: UNK, QD
     Route: 065
  21. OSTO-D2 [Concomitant]
     Dosage: UNK, QW
     Route: 065
  22. OSTO-D2 [Concomitant]
     Dosage: 1 DOSAGE FORM, QW
     Route: 065
  23. CRESTOR [Concomitant]
     Active Substance: ROSUVASTATIN CALCIUM
     Indication: Product used for unknown indication
     Dosage: 10 MG
     Route: 065
  24. IRON [Concomitant]
     Active Substance: IRON
     Indication: Product used for unknown indication
     Dosage: 300 MG
     Route: 065

REACTIONS (20)
  - Heart rate abnormal [Unknown]
  - Blood pressure measurement [Unknown]
  - Dysstasia [Unknown]
  - Nausea [Unknown]
  - Pain of skin [Unknown]
  - Hypoaesthesia oral [Unknown]
  - Photophobia [Unknown]
  - Eye pain [Unknown]
  - Therapeutic product effect decreased [Unknown]
  - Hypertension [Unknown]
  - Swelling face [Unknown]
  - Drug ineffective [Unknown]
  - Drug intolerance [Unknown]
  - Headache [Unknown]
  - Off label use [Unknown]
  - Concussion [Unknown]
  - Fall [Unknown]
  - Migraine [Unknown]
  - Product use in unapproved indication [Unknown]
  - Drug ineffective for unapproved indication [Unknown]

NARRATIVE: CASE EVENT DATE: 20200215
